FAERS Safety Report 23193386 (Version 1)
Quarter: 2023Q4

REPORT INFORMATION
  Report Type: Report from Study
  Country: DE (occurrence: DE)
  Receive Date: 20231116
  Receipt Date: 20231116
  Transmission Date: 20240110
  Serious: Yes (Other)
  Sender: FDA-Public Use
  Company Number: DE-TEVA-2023-DE-2944584

PATIENT
  Sex: Male

DRUGS (3)
  1. LENALIDOMIDE [Suspect]
     Active Substance: LENALIDOMIDE
     Indication: Plasma cell myeloma
     Dosage: CHEMOTHERAPY
     Route: 065
  2. DARBEPOETIN ALFA [Suspect]
     Active Substance: DARBEPOETIN ALFA
     Indication: Plasma cell myeloma
     Dosage: CHEMOTHERAPY
     Route: 065
  3. DARATUMUMAB [Suspect]
     Active Substance: DARATUMUMAB
     Indication: Plasma cell myeloma
     Dosage: IMMUNOTHERAPY
     Route: 065

REACTIONS (5)
  - Neuropathy peripheral [Unknown]
  - Erectile dysfunction [Unknown]
  - Sensory disturbance [Unknown]
  - Male reproductive tract disorder [Unknown]
  - Penis disorder [Unknown]
